FAERS Safety Report 6656464-6 (Version None)
Quarter: 2010Q1

REPORT INFORMATION
  Report Type: 
  Country: None (occurrence: None)
  Receive Date: 20100329
  Receipt Date: 20100317
  Transmission Date: 20100710
  Serious: Yes (Hospitalization)
  Sender: FDA-Public Use
  Company Number: JP-PFIZER INC-2010034279

PATIENT
  Age: 65 Year
  Sex: Male

DRUGS (5)
  1. SOLU-CORTEF [Suspect]
     Indication: PROPHYLAXIS
     Dosage: EVERY OTHER WEEK
     Route: 042
     Dates: start: 20091008, end: 20100315
  2. AVASTIN [Concomitant]
     Dosage: UNK
  3. FLUOROURACIL/FOLINIC ACID/OXALIPLATIN [Concomitant]
     Dosage: UNK
  4. FLUOROURACIL [Concomitant]
     Dosage: UNK
  5. OXALIPLATIN [Concomitant]
     Dosage: UNK

REACTIONS (1)
  - ANAPHYLACTOID REACTION [None]
